FAERS Safety Report 6638209-9 (Version None)
Quarter: 2010Q1

REPORT INFORMATION
  Report Type: 
  Country: None (occurrence: None)
  Receive Date: 20100315
  Receipt Date: 20100315
  Transmission Date: 20100710
  Serious: No
  Sender: FDA-Public Use
  Company Number: None

PATIENT

DRUGS (5)
  1. HYDROCHLOROTHIAZIDE [Suspect]
  2. FLUOXETINE [Concomitant]
  3. METFORMIN [Concomitant]
  4. RANITIDINE [Concomitant]
  5. OLANZAPINE [Concomitant]

REACTIONS (1)
  - URTICARIA [None]
